FAERS Safety Report 17943151 (Version 27)
Quarter: 2025Q1

REPORT INFORMATION
  Report Type: Report from Study
  Country: US (occurrence: US)
  Receive Date: 20200625
  Receipt Date: 20250108
  Transmission Date: 20250409
  Serious: Yes (Hospitalization, Other)
  Sender: TAKEDA
  Company Number: US-SHIRE-US202020689

PATIENT
  Age: 37 Year
  Sex: Female
  Weight: 74 kg

DRUGS (52)
  1. HUMAN IMMUNOGLOBULIN G [Suspect]
     Active Substance: HUMAN IMMUNOGLOBULIN G
     Indication: Autonomic neuropathy
     Dosage: 10 GRAM, 1/WEEK
     Dates: start: 20190521
  2. HUMAN IMMUNOGLOBULIN G [Suspect]
     Active Substance: HUMAN IMMUNOGLOBULIN G
     Indication: Antibody test abnormal
     Dosage: 5 GRAM, 1/WEEK
     Dates: start: 20190522
  3. HUMAN IMMUNOGLOBULIN G [Suspect]
     Active Substance: HUMAN IMMUNOGLOBULIN G
     Dosage: 20 GRAM, 1/WEEK
     Dates: start: 20190619
  4. HUMAN IMMUNOGLOBULIN G [Suspect]
     Active Substance: HUMAN IMMUNOGLOBULIN G
     Dosage: 15 GRAM, 1/WEEK
  5. HUMAN IMMUNOGLOBULIN G [Suspect]
     Active Substance: HUMAN IMMUNOGLOBULIN G
     Dosage: 18 GRAM, 1/WEEK
  6. HUMAN IMMUNOGLOBULIN G [Suspect]
     Active Substance: HUMAN IMMUNOGLOBULIN G
  7. TYLENOL [Suspect]
     Active Substance: ACETAMINOPHEN
     Indication: Product used for unknown indication
  8. DIPHENHYDRAMINE [Concomitant]
     Active Substance: DIPHENHYDRAMINE
  9. DIPHENHYDRAMINE HYDROCHLORIDE [Concomitant]
     Active Substance: DIPHENHYDRAMINE HYDROCHLORIDE
  10. VITAMIN D3 [Concomitant]
     Active Substance: CHOLECALCIFEROL
  11. CORLANOR [Concomitant]
     Active Substance: IVABRADINE HYDROCHLORIDE
  12. METOPROLOL SUCCINATE [Concomitant]
     Active Substance: METOPROLOL SUCCINATE
  13. SODIUM CHLORIDE [Concomitant]
     Active Substance: SODIUM CHLORIDE
  14. EPINEPHRINE [Concomitant]
     Active Substance: EPINEPHRINE
  15. FLUTICASONE PROPIONATE [Concomitant]
     Active Substance: FLUTICASONE PROPIONATE
  16. NIACIN [Concomitant]
     Active Substance: NIACIN
  17. RIZATRIPTAN [Concomitant]
     Active Substance: RIZATRIPTAN
  18. THIAMINE HYDROCHLORIDE [Concomitant]
     Active Substance: THIAMINE HYDROCHLORIDE
  19. REGLAN [Concomitant]
     Active Substance: METOCLOPRAMIDE HYDROCHLORIDE
  20. ZYRTEC [Concomitant]
     Active Substance: CETIRIZINE HYDROCHLORIDE
  21. ACETAMINOPHEN [Concomitant]
     Active Substance: ACETAMINOPHEN
  22. VITAMIN C [Concomitant]
     Active Substance: ASCORBIC ACID
  23. CYCLOBENZAPRINE HYDROCHLORIDE [Concomitant]
     Active Substance: CYCLOBENZAPRINE HYDROCHLORIDE
  24. ZOFRAN [Concomitant]
     Active Substance: ONDANSETRON HYDROCHLORIDE
  25. AIMOVIG [Concomitant]
     Active Substance: ERENUMAB-AOOE
  26. LEVOTHYROXINE SODIUM [Concomitant]
     Active Substance: LEVOTHYROXINE SODIUM
  27. DISULFIRAM [Concomitant]
     Active Substance: DISULFIRAM
  28. LORAZEPAM [Concomitant]
     Active Substance: LORAZEPAM
  29. PEPCID [Concomitant]
     Active Substance: FAMOTIDINE
  30. HYDROXYZINE HYDROCHLORIDE [Concomitant]
     Active Substance: HYDROXYZINE HYDROCHLORIDE
  31. MAGNESIUM [Concomitant]
     Active Substance: MAGNESIUM
  32. MIDODRINE HYDROCHLORIDE [Concomitant]
     Active Substance: MIDODRINE HYDROCHLORIDE
  33. MELATONIN [Concomitant]
     Active Substance: MELATONIN
  34. CROMOLYN SODIUM [Concomitant]
     Active Substance: CROMOLYN SODIUM
  35. LYRICA [Concomitant]
     Active Substance: PREGABALIN
  36. Lmx [Concomitant]
  37. PYRIDOSTIGMINE BROMIDE [Concomitant]
     Active Substance: PYRIDOSTIGMINE BROMIDE
  38. KETOTIFEN FUMARATE [Concomitant]
     Active Substance: KETOTIFEN FUMARATE
  39. PURELAX [Concomitant]
     Active Substance: POLYETHYLENE GLYCOL 3350
  40. FLUDROCORTISONE ACETATE [Concomitant]
     Active Substance: FLUDROCORTISONE ACETATE
  41. NALTREXONE HYDROCHLORIDE [Concomitant]
     Active Substance: NALTREXONE HYDROCHLORIDE
  42. HEPARIN [Concomitant]
     Active Substance: HEPARIN SODIUM
  43. SODIUM CHLORIDE [Concomitant]
     Active Substance: SODIUM CHLORIDE
  44. FERRETTS [Concomitant]
  45. DAPSONE [Concomitant]
     Active Substance: DAPSONE
  46. ZINC [Concomitant]
     Active Substance: ZINC
  47. MIDODRINE [Concomitant]
     Active Substance: MIDODRINE
  48. LINZESS [Concomitant]
     Active Substance: LINACLOTIDE
  49. POLYETHYLENE GLYCOL [Concomitant]
     Active Substance: POLYETHYLENE GLYCOL
  50. CLOBETASOL [Concomitant]
     Active Substance: CLOBETASOL
  51. IMITREX [Concomitant]
     Active Substance: SUMATRIPTAN SUCCINATE
  52. PEDIALYTE ADVANCED CARE [Concomitant]

REACTIONS (30)
  - Disorientation [Unknown]
  - Pneumonia [Unknown]
  - Psychotic disorder [Unknown]
  - Infusion site irritation [Unknown]
  - Procedural complication [Unknown]
  - Bronchitis [Not Recovered/Not Resolved]
  - Nasopharyngitis [Unknown]
  - COVID-19 [Recovered/Resolved]
  - Blood pressure decreased [Unknown]
  - Dermatitis contact [Unknown]
  - Illness [Unknown]
  - Insurance issue [Unknown]
  - Infusion site discharge [Unknown]
  - Injection site reaction [Unknown]
  - Viral infection [Not Recovered/Not Resolved]
  - Product distribution issue [Unknown]
  - Intentional product use issue [Unknown]
  - Product dose omission issue [Unknown]
  - Incorrect drug administration rate [Unknown]
  - Product use issue [Unknown]
  - Bacterial infection [Unknown]
  - Sinusitis [Unknown]
  - Upper respiratory tract infection [Unknown]
  - Pain [Unknown]
  - Asthenia [Unknown]
  - Anxiety [Unknown]
  - Malaise [Unknown]
  - Abdominal pain [Unknown]
  - Infusion site pain [Unknown]
  - Fatigue [Unknown]

NARRATIVE: CASE EVENT DATE: 20230829
